FAERS Safety Report 7777253-5 (Version None)
Quarter: 2011Q3

REPORT INFORMATION
  Report Type: 
  Country: None (occurrence: None)
  Receive Date: 20110926
  Receipt Date: 20110913
  Transmission Date: 20111222
  Serious: Yes (Hospitalization)
  Sender: FDA-Public Use
  Company Number: PHHO2009CH06677

PATIENT
  Sex: Male
  Weight: 80 kg

DRUGS (4)
  1. SANDIMMUNE [Concomitant]
     Dosage: UNK
     Dates: start: 20081218
  2. SPIRICORT [Concomitant]
     Indication: RENAL TRANSPLANT
     Dosage: 20 MG, UNK
     Route: 048
     Dates: start: 20081220
  3. EVEROLIMUS [Suspect]
     Indication: RENAL TRANSPLANT
     Dosage: 5.25 MG/ DAY
     Route: 048
     Dates: start: 20090321
  4. MYFORTIC [Suspect]
     Dosage: 1080 MG, BID
     Route: 048
     Dates: start: 20081217

REACTIONS (2)
  - BLOOD CREATININE INCREASED [None]
  - KIDNEY TRANSPLANT REJECTION [None]
